FAERS Safety Report 26123730 (Version 1)
Quarter: 2025Q4

REPORT INFORMATION
  Report Type: Spontaneous
  Country: EU (occurrence: EU)
  Receive Date: 20251205
  Receipt Date: 20251205
  Transmission Date: 20260118
  Serious: Yes (Other)
  Sender: Haleon PLC
  Company Number: EU-BAYER-2023A175067

PATIENT
  Age: 77 Year
  Sex: Male
  Weight: 77 kg

DRUGS (96)
  1. DICLOFENAC [Suspect]
     Active Substance: DICLOFENAC
     Indication: Product used for unknown indication
     Dosage: UNK
  2. CRESTOR [Suspect]
     Active Substance: ROSUVASTATIN CALCIUM
     Indication: Product used for unknown indication
     Dosage: UNK
  3. BIOTIN [Suspect]
     Active Substance: BIOTIN
     Indication: Secretion discharge
     Dosage: 1 DF, QW
  4. BIOTIN [Suspect]
     Active Substance: BIOTIN
     Indication: Dysphonia
     Dosage: 9 DF, QD
  5. BIOTIN [Suspect]
     Active Substance: BIOTIN
     Indication: Nasopharyngitis
     Dosage: 10 DF, QD
  6. BIOTIN [Suspect]
     Active Substance: BIOTIN
     Indication: Chest discomfort
     Dosage: 1000 MG
  7. BIOTIN [Suspect]
     Active Substance: BIOTIN
     Dosage: 2000 IU
  8. BIOTIN [Suspect]
     Active Substance: BIOTIN
     Dosage: 8 DF, QD
  9. BIOTIN [Suspect]
     Active Substance: BIOTIN
     Dosage: 1 DF, QD
  10. ATROVENT [Suspect]
     Active Substance: IPRATROPIUM BROMIDE
     Indication: Cough
     Dosage: UNK
  11. ATROVENT [Suspect]
     Active Substance: IPRATROPIUM BROMIDE
     Indication: Nasopharyngitis
  12. ATROVENT [Suspect]
     Active Substance: IPRATROPIUM BROMIDE
     Indication: Pneumothorax
  13. ATROVENT [Suspect]
     Active Substance: IPRATROPIUM BROMIDE
     Indication: Secretion discharge
  14. ATROVENT [Suspect]
     Active Substance: IPRATROPIUM BROMIDE
     Indication: Chest discomfort
  15. ATROVENT [Suspect]
     Active Substance: IPRATROPIUM BROMIDE
     Indication: Dyspnoea
  16. ATROVENT [Suspect]
     Active Substance: IPRATROPIUM BROMIDE
     Indication: Secretion discharge
  17. ATROVENT [Suspect]
     Active Substance: IPRATROPIUM BROMIDE
     Indication: Dysphonia
  18. ATROVENT [Suspect]
     Active Substance: IPRATROPIUM BROMIDE
     Indication: Nasopharyngitis
  19. ALBUTEROL SULFATE [Suspect]
     Active Substance: ALBUTEROL SULFATE
     Indication: Pneumothorax
     Dosage: UNK
  20. ALBUTEROL SULFATE [Suspect]
     Active Substance: ALBUTEROL SULFATE
     Indication: Dysphonia
  21. ALBUTEROL SULFATE [Suspect]
     Active Substance: ALBUTEROL SULFATE
     Indication: Nasopharyngitis
  22. ALBUTEROL SULFATE [Suspect]
     Active Substance: ALBUTEROL SULFATE
     Indication: Chest discomfort
  23. ALBUTEROL SULFATE [Suspect]
     Active Substance: ALBUTEROL SULFATE
     Indication: Secretion discharge
  24. ALBUTEROL SULFATE [Suspect]
     Active Substance: ALBUTEROL SULFATE
     Indication: Pneumothorax
  25. ALBUTEROL SULFATE [Suspect]
     Active Substance: ALBUTEROL SULFATE
     Indication: Productive cough
  26. SALMETEROL [Suspect]
     Active Substance: SALMETEROL
     Indication: Secretion discharge
     Dosage: UNK
  27. SALMETEROL [Suspect]
     Active Substance: SALMETEROL
     Indication: Nasopharyngitis
  28. SALMETEROL [Suspect]
     Active Substance: SALMETEROL
     Indication: Pneumothorax
  29. SALMETEROL [Suspect]
     Active Substance: SALMETEROL
     Indication: Secretion discharge
  30. SALMETEROL [Suspect]
     Active Substance: SALMETEROL
     Indication: Dyspnoea
  31. SALMETEROL [Suspect]
     Active Substance: SALMETEROL
     Indication: Pneumothorax
  32. .ALPHA.-TOCOPHEROL ACETATE, DL- [Suspect]
     Active Substance: .ALPHA.-TOCOPHEROL ACETATE, DL-
     Indication: Product used for unknown indication
     Dosage: 1 DF, QW
  33. MOMETASONE [Suspect]
     Active Substance: MOMETASONE
     Indication: Product used for unknown indication
     Dosage: UNK
  34. ROSUVASTATIN CALCIUM [Suspect]
     Active Substance: ROSUVASTATIN CALCIUM
     Indication: Product used for unknown indication
     Dosage: UNK
  35. CALCIUM PANTOTHENATE [Suspect]
     Active Substance: CALCIUM PANTOTHENATE
     Indication: Product used for unknown indication
     Dosage: UNK, TID
  36. MAGNESIUM OROTATE [Suspect]
     Active Substance: MAGNESIUM OROTATE
     Indication: Product used for unknown indication
     Dosage: UNK UNK, QD, (TID (3-2-3))
  37. MAGNESIUM OROTATE [Suspect]
     Active Substance: MAGNESIUM OROTATE
  38. FLUTICASONE PROPIONATE\SALMETEROL XINAFOATE [Suspect]
     Active Substance: FLUTICASONE PROPIONATE\SALMETEROL XINAFOATE
     Indication: Nasopharyngitis
     Dosage: UNK
  39. FLUTICASONE PROPIONATE\SALMETEROL XINAFOATE [Suspect]
     Active Substance: FLUTICASONE PROPIONATE\SALMETEROL XINAFOATE
     Indication: Dyspnoea
  40. FLUTICASONE PROPIONATE\SALMETEROL XINAFOATE [Suspect]
     Active Substance: FLUTICASONE PROPIONATE\SALMETEROL XINAFOATE
     Indication: Pneumothorax
  41. FLUTICASONE PROPIONATE\SALMETEROL XINAFOATE [Suspect]
     Active Substance: FLUTICASONE PROPIONATE\SALMETEROL XINAFOATE
     Indication: Secretion discharge
  42. FLUTICASONE PROPIONATE\SALMETEROL XINAFOATE [Suspect]
     Active Substance: FLUTICASONE PROPIONATE\SALMETEROL XINAFOATE
     Indication: Dysphonia
  43. FLUTICASONE PROPIONATE\SALMETEROL XINAFOATE [Suspect]
     Active Substance: FLUTICASONE PROPIONATE\SALMETEROL XINAFOATE
     Indication: Cough
  44. TOCOPHEROL [Suspect]
     Active Substance: TOCOPHEROL
     Indication: Product used for unknown indication
     Dosage: UNK, 2000
  45. IBUPROFEN [Suspect]
     Active Substance: IBUPROFEN
     Indication: Product used for unknown indication
     Dosage: UNK (AS NEEDED (PRN))
  46. MOMETASONE FUROATE [Suspect]
     Active Substance: MOMETASONE FUROATE
     Indication: Product used for unknown indication
     Dosage: UNK
  47. BISOPROLOL [Suspect]
     Active Substance: BISOPROLOL
     Indication: Product used for unknown indication
     Dosage: UNK, QD
  48. CALCIUM CARBONATE [Suspect]
     Active Substance: CALCIUM CARBONATE
     Indication: Product used for unknown indication
     Dosage: 1000 MG, QD, (500 MG BID(1)
  49. ERGOCALCIFEROL [Suspect]
     Active Substance: ERGOCALCIFEROL
     Indication: Product used for unknown indication
     Dosage: UNK, 2000
  50. CIALIS [Suspect]
     Active Substance: TADALAFIL
     Indication: Product used for unknown indication
     Dosage: UNK
  51. COLESEVELAM HYDROCHLORIDE [Suspect]
     Active Substance: COLESEVELAM HYDROCHLORIDE
     Indication: Product used for unknown indication
     Dosage: UNK
  52. MAGNESIUM ASPARTATE\POTASSIUM ASPARTATE [Suspect]
     Active Substance: MAGNESIUM ASPARTATE\POTASSIUM ASPARTATE
     Indication: Product used for unknown indication
     Dosage: UNK
  53. FLUTICASONE PROPIONATE [Suspect]
     Active Substance: FLUTICASONE PROPIONATE
     Indication: Nasopharyngitis
     Dosage: UNK
  54. FLUTICASONE PROPIONATE [Suspect]
     Active Substance: FLUTICASONE PROPIONATE
     Indication: Pneumothorax
  55. FLUTICASONE PROPIONATE [Suspect]
     Active Substance: FLUTICASONE PROPIONATE
     Indication: Secretion discharge
  56. FLUTICASONE PROPIONATE [Suspect]
     Active Substance: FLUTICASONE PROPIONATE
     Indication: Cough
  57. FLUTICASONE PROPIONATE [Suspect]
     Active Substance: FLUTICASONE PROPIONATE
     Indication: Dysphonia
  58. FLUTICASONE PROPIONATE [Suspect]
     Active Substance: FLUTICASONE PROPIONATE
     Indication: Dyspnoea
  59. PRALUENT [Suspect]
     Active Substance: ALIROCUMAB
     Indication: Product used for unknown indication
     Dosage: UNK, 75
  60. MAGNESIUM ASPARTATE [Suspect]
     Active Substance: MAGNESIUM ASPARTATE
     Indication: Product used for unknown indication
     Dosage: UNK
  61. ASPIRIN [Suspect]
     Active Substance: ASPIRIN
     Indication: Product used for unknown indication
     Dosage: UNK
  62. HERBALS [Suspect]
     Active Substance: HERBALS
     Indication: Product used for unknown indication
     Dosage: UNK
  63. CALCIUM [Suspect]
     Active Substance: CALCIUM
     Indication: Product used for unknown indication
     Dosage: 1000 MG
  64. ALBUTEROL [Suspect]
     Active Substance: ALBUTEROL
     Indication: Secretion discharge
     Dosage: UNK
  65. COLESEVELAM [Suspect]
     Active Substance: COLESEVELAM
     Indication: Product used for unknown indication
     Dosage: UNK
  66. TADALAFIL [Suspect]
     Active Substance: TADALAFIL
     Indication: Product used for unknown indication
     Dosage: UNK
  67. XARELTO [Suspect]
     Active Substance: RIVAROXABAN
     Indication: Product used for unknown indication
     Dosage: UNK
  68. CLOPIDOGREL [Suspect]
     Active Substance: CLOPIDOGREL BISULFATE
     Indication: Product used for unknown indication
     Dosage: UNK
  69. CLOPIDOGREL [Suspect]
     Active Substance: CLOPIDOGREL BISULFATE
     Dosage: UNK
  70. GINKGO [Suspect]
     Active Substance: GINKGO
     Indication: Product used for unknown indication
     Dosage: UNK, BID, UNK, BID (STRENGTH: 500)
  71. CALCIUM PANTOTHENATE [Suspect]
     Active Substance: CALCIUM PANTOTHENATE
     Indication: Product used for unknown indication
     Dosage: UNK UNK, TID
  72. CALCIUM PANTOTHENATE [Suspect]
     Active Substance: CALCIUM PANTOTHENATE
     Dosage: UNK, Q8H; UNKNOWN
  73. AMBROXOL HYDROCHLORIDE [Suspect]
     Active Substance: AMBROXOL HYDROCHLORIDE
     Indication: Product used for unknown indication
     Dosage: UNK
  74. IBUPROFEN [Suspect]
     Active Substance: IBUPROFEN
     Indication: Product used for unknown indication
     Dosage: UNK
  75. MOMETASONE FUROATE [Suspect]
     Active Substance: MOMETASONE FUROATE
     Indication: Product used for unknown indication
     Dosage: UNK
  76. ASPIRIN CALCIUM [Suspect]
     Active Substance: ASPIRIN CALCIUM
     Indication: Product used for unknown indication
     Dosage: UNK
  77. DICLOFENAC DIETHYLAMINE [Suspect]
     Active Substance: DICLOFENAC DIETHYLAMINE
     Indication: Product used for unknown indication
     Dosage: UNK
  78. TAMSULOSIN [Suspect]
     Active Substance: TAMSULOSIN
     Indication: Product used for unknown indication
     Dosage: UNK
  79. SOAP [Suspect]
     Active Substance: SOAP
     Indication: Dyspnoea
  80. SOAP [Suspect]
     Active Substance: SOAP
     Indication: Nasopharyngitis
  81. SOAP [Suspect]
     Active Substance: SOAP
     Indication: Product used for unknown indication
  82. SOAP [Suspect]
     Active Substance: SOAP
     Indication: Bronchitis
  83. SOAP [Suspect]
     Active Substance: SOAP
     Indication: Pneumothorax
  84. SOAP [Suspect]
     Active Substance: SOAP
     Indication: Asthma
  85. SOAP [Suspect]
     Active Substance: SOAP
     Indication: Dysphonia
  86. SOAP [Suspect]
     Active Substance: SOAP
     Indication: Cough
  87. MOMETASONE FUROATE [Suspect]
     Active Substance: MOMETASONE FUROATE
     Indication: Product used for unknown indication
  88. MENTHA PIPERITA [Concomitant]
     Active Substance: MENTHA PIPERITA
     Indication: Product used for unknown indication
     Dosage: UNK
  89. PREDNISOLONE [Concomitant]
     Active Substance: PREDNISOLONE
     Indication: Product used for unknown indication
     Dosage: UNK
  90. VOTUM [Concomitant]
     Indication: Product used for unknown indication
     Dosage: 500 IU, BID
  91. AMBROXOL HYDROCHLORIDE [Concomitant]
     Active Substance: AMBROXOL HYDROCHLORIDE
     Indication: Product used for unknown indication
     Dosage: UNK
  92. REPATHA [Concomitant]
     Active Substance: EVOLOCUMAB
     Indication: Product used for unknown indication
     Dosage: UNK, 1 IN 1 WEEK
  93. CALCIUM CARBONATE [Concomitant]
     Active Substance: CALCIUM CARBONATE
     Indication: Product used for unknown indication
     Dosage: UNK
  94. OLMESARTAN MEDOXOMIL [Concomitant]
     Active Substance: OLMESARTAN MEDOXOMIL
     Indication: Product used for unknown indication
     Dosage: UNK
  95. EVOLOCUMAB [Concomitant]
     Active Substance: EVOLOCUMAB
     Indication: Product used for unknown indication
     Dosage: UNK
  96. EUCALYPTUS GLOBULUS LEAF [Concomitant]
     Active Substance: EUCALYPTUS GLOBULUS LEAF
     Indication: Product used for unknown indication
     Dosage: UNK

REACTIONS (24)
  - Foreign body in throat [Unknown]
  - Sensation of foreign body [Unknown]
  - Atrial fibrillation [Recovered/Resolved]
  - Nasopharyngitis [Unknown]
  - Chest discomfort [Not Recovered/Not Resolved]
  - Cardiac disorder [Unknown]
  - Plantar fasciitis [Unknown]
  - Obstructive sleep apnoea syndrome [Unknown]
  - Brain natriuretic peptide increased [Unknown]
  - Bronchospasm [Unknown]
  - Pneumothorax [Not Recovered/Not Resolved]
  - Cough [Not Recovered/Not Resolved]
  - Increased upper airway secretion [Unknown]
  - Dysphonia [Not Recovered/Not Resolved]
  - Myoglobin blood increased [Unknown]
  - Obstructive airways disorder [Unknown]
  - Muscle spasms [Unknown]
  - Wheezing [Unknown]
  - Exostosis [Unknown]
  - Coronary artery disease [Unknown]
  - Dyspnoea exertional [Unknown]
  - Fractional exhaled nitric oxide increased [Recovered/Resolved]
  - Dyspnoea [Unknown]
  - Eosinophilia [Unknown]

NARRATIVE: CASE EVENT DATE: 20200320
